FAERS Safety Report 9005054 (Version 1)
Quarter: 2013Q1

REPORT INFORMATION
  Report Type: Spontaneous
  Country: US (occurrence: US)
  Receive Date: 20130109
  Receipt Date: 20130109
  Transmission Date: 20140127
  Serious: No
  Sender: FDA-Public Use
  Company Number: US-VERTEX PHARMACEUTICALS INC.-2013-000362

PATIENT
  Age: 54 Year
  Sex: Male

DRUGS (7)
  1. INCIVEK [Suspect]
     Indication: HEPATITIS C
     Dosage: 750 MG, TID
     Route: 048
     Dates: start: 20121102
  2. RIBAVIRIN [Suspect]
     Indication: HEPATITIS C
     Dosage: 600 MG, BID
     Route: 048
     Dates: start: 20121102
  3. RIBAVIRIN [Suspect]
     Dosage: 400 MG, BID
     Route: 048
     Dates: start: 20121119
  4. PEGASYS [Suspect]
     Indication: HEPATITIS C
     Dosage: 180 ?G, QW
     Route: 058
     Dates: start: 20121102
  5. LISINOPRIL [Concomitant]
     Indication: HYPERTENSION
  6. ATENOLOL [Concomitant]
     Indication: HYPERTENSION
  7. SPIRONOLACTONE [Concomitant]

REACTIONS (4)
  - Hypotension [Unknown]
  - Insomnia [Not Recovered/Not Resolved]
  - Anaemia [Unknown]
  - Pruritus [Not Recovered/Not Resolved]
